FAERS Safety Report 25640375 (Version 2)
Quarter: 2025Q3

REPORT INFORMATION
  Report Type: Spontaneous
  Country: US (occurrence: US)
  Receive Date: 20250804
  Receipt Date: 20250815
  Transmission Date: 20251020
  Serious: Yes (Other)
  Sender: BAYER HEALTHCARE PHARMACEUTICALS INC.
  Company Number: US-BAYER-2025A102253

PATIENT
  Age: 37 Year
  Sex: Male

DRUGS (3)
  1. JIVI [Suspect]
     Active Substance: DAMOCTOCOG ALFA PEGOL
     Route: 042
  2. JIVI [Suspect]
     Active Substance: DAMOCTOCOG ALFA PEGOL
     Route: 042
     Dates: start: 202507
  3. JIVI [Suspect]
     Active Substance: DAMOCTOCOG ALFA PEGOL
     Route: 042
     Dates: start: 20250728

REACTIONS (5)
  - Fall [None]
  - Lower limb fracture [None]
  - Arthralgia [None]
  - Joint injury [None]
  - Arthralgia [None]

NARRATIVE: CASE EVENT DATE: 20250716
